FAERS Safety Report 9743907 (Version 1)
Quarter: 2013Q4

REPORT INFORMATION
  Report Type: Spontaneous
  Country: US (occurrence: US)
  Receive Date: 20131210
  Receipt Date: 20131210
  Transmission Date: 20140711
  Serious: No
  Sender: FDA-Public Use
  Company Number: US-BIOGENIDEC-2013BI097943

PATIENT
  Sex: Male
  Weight: 71 kg

DRUGS (9)
  1. TECFIDERA [Suspect]
     Indication: PRODUCT USED FOR UNKNOWN INDICATION
     Route: 048
  2. TECFIDERA [Suspect]
     Indication: PRODUCT USED FOR UNKNOWN INDICATION
     Route: 048
  3. B COMPLEX [Concomitant]
     Route: 048
  4. FISH OIL [Concomitant]
     Route: 048
  5. ADVIL [Concomitant]
     Route: 048
  6. MAGNESIUM [Concomitant]
     Route: 048
  7. GABAPENTIN [Concomitant]
     Route: 048
  8. NIACIN [Concomitant]
     Route: 048
  9. CLONAZEPAM [Concomitant]
     Route: 048

REACTIONS (3)
  - Back pain [Unknown]
  - Pain in extremity [Unknown]
  - Skin warm [Unknown]
